FAERS Safety Report 26165695 (Version 1)
Quarter: 2025Q4

REPORT INFORMATION
  Report Type: Spontaneous
  Country: CN (occurrence: None)
  Receive Date: 20251216
  Receipt Date: 20251216
  Transmission Date: 20260118
  Serious: Yes (Hospitalization)
  Sender: AMERICAN REGENT
  Company Number: CN-AMERICAN REGENT INC-2025004320

PATIENT
  Age: 67 Year
  Sex: Male

DRUGS (2)
  1. VENOFER [Suspect]
     Active Substance: IRON SUCROSE
     Indication: Supplementation therapy
     Dosage: 0.10 GRAM, QD
     Dates: start: 20251104, end: 20251104
  2. VENOFER [Suspect]
     Active Substance: IRON SUCROSE
     Indication: Iron deficiency anaemia

REACTIONS (3)
  - Chills [Recovering/Resolving]
  - Pyrexia [Recovering/Resolving]
  - Temperature intolerance [Recovering/Resolving]

NARRATIVE: CASE EVENT DATE: 20251104
